FAERS Safety Report 8227160-9 (Version None)
Quarter: 2012Q1

REPORT INFORMATION
  Report Type: 
  Country: None (occurrence: None)
  Receive Date: 20120322
  Receipt Date: 20120315
  Transmission Date: 20120608
  Serious: Yes (Death, Life-Threatening, Other)
  Sender: FDA-Public Use
  Company Number: DE-JNJFOC-20110801225

PATIENT
  Age: 80 Year
  Sex: Female

DRUGS (9)
  1. K CL TAB [Concomitant]
     Route: 048
     Dates: start: 20040910, end: 20040916
  2. PANTOPRAZOLE [Concomitant]
     Route: 048
     Dates: end: 20040916
  3. NALOXONE [Concomitant]
     Route: 048
     Dates: start: 20000101, end: 20040916
  4. CIPROFLOXACIN [Concomitant]
     Route: 048
     Dates: start: 20040913, end: 20040916
  5. VALORON [Concomitant]
     Route: 048
     Dates: end: 20040916
  6. MIRTAZAPINE [Concomitant]
     Route: 048
     Dates: end: 20040916
  7. RISPERDAL [Suspect]
     Indication: PRODUCT USED FOR UNKNOWN INDICATION
     Route: 048
     Dates: start: 20040910, end: 20040916
  8. FOLSAN [Concomitant]
     Route: 048
     Dates: end: 20040916
  9. MORPHINE [Concomitant]
     Route: 048
     Dates: start: 20040916, end: 20040918

REACTIONS (3)
  - PNEUMONIA [None]
  - GENERAL PHYSICAL HEALTH DETERIORATION [None]
  - PULMONARY EMBOLISM [None]
